FAERS Safety Report 19612517 (Version 1)
Quarter: 2021Q3

REPORT INFORMATION
  Report Type: Spontaneous
  Country: US (occurrence: US)
  Receive Date: 20210726
  Receipt Date: 20210726
  Transmission Date: 20211014
  Serious: No
  Sender: FDA-Public Use
  Company Number: US-ORGANON-O2107USA001813

PATIENT
  Age: 49 Year
  Sex: Female

DRUGS (1)
  1. SINGULAIR [Suspect]
     Active Substance: MONTELUKAST SODIUM
     Indication: GASTROENTERITIS EOSINOPHILIC
     Dosage: 10 MG ONCE A DAY BY MOUTH
     Route: 048

REACTIONS (1)
  - Product use in unapproved indication [Unknown]
